FAERS Safety Report 8339842-9 (Version None)
Quarter: 2012Q2

REPORT INFORMATION
  Report Type: 
  Country: None (occurrence: None)
  Receive Date: 20120507
  Receipt Date: 20120430
  Transmission Date: 20120825
  Serious: Yes (Other)
  Sender: FDA-Public Use
  Company Number: GB-PFIZER INC-2012105655

PATIENT
  Age: 63 Year
  Sex: Female

DRUGS (1)
  1. LIPITOR [Suspect]
     Dosage: 1 NIGHT
     Route: 048
     Dates: start: 20120407, end: 20120408

REACTIONS (6)
  - DIZZINESS [None]
  - HYPERHIDROSIS [None]
  - NAUSEA [None]
  - CONFUSIONAL STATE [None]
  - VOMITING [None]
  - BODY TEMPERATURE INCREASED [None]
